FAERS Safety Report 6441505-1 (Version None)
Quarter: 2009Q4

REPORT INFORMATION
  Report Type: 
  Country: None (occurrence: None)
  Receive Date: 20091116
  Receipt Date: 20091106
  Transmission Date: 20100525
  Serious: Yes (Other)
  Sender: FDA-Public Use
  Company Number: B0602740A

PATIENT
  Sex: Female

DRUGS (3)
  1. LAMICTAL [Suspect]
     Indication: EPILEPSY
     Route: 048
     Dates: start: 19991101
  2. SPECIAFOLDINE [Concomitant]
     Dates: start: 20060101
  3. FUMAFER [Concomitant]

REACTIONS (5)
  - DRUG EXPOSURE DURING PREGNANCY [None]
  - EPILEPSY [None]
  - LIVE BIRTH [None]
  - PREMATURE BABY [None]
  - TWIN PREGNANCY [None]
